FAERS Safety Report 9693203 (Version 2)
Quarter: 2013Q4

REPORT INFORMATION
  Report Type: Spontaneous
  Country: GB (occurrence: GB)
  Receive Date: 20131118
  Receipt Date: 20131211
  Transmission Date: 20140711
  Serious: Yes (Death, Hospitalization)
  Sender: FDA-Public Use
  Company Number: GB-B.I. PHARMACEUTICALS,INC./RIDGEFIELD-2013-BI-37924UK

PATIENT
  Age: 54 Year
  Sex: Female

DRUGS (10)
  1. PRADAXA [Suspect]
     Indication: CEREBROVASCULAR ACCIDENT PROPHYLAXIS
     Route: 048
     Dates: start: 201308
  2. PRADAXA [Suspect]
     Indication: ATRIAL FIBRILLATION
  3. FLUOXETINE [Concomitant]
  4. RANITIDINE [Concomitant]
  5. SPIRONOLACTONE [Concomitant]
  6. FUROSEMIDE [Concomitant]
  7. RAMIPRIL [Concomitant]
  8. CLOPIDOGREL [Concomitant]
  9. BISOPROLOL [Concomitant]
  10. DIGOXIN [Concomitant]

REACTIONS (2)
  - Haemorrhage intracranial [Fatal]
  - Congestive cardiomyopathy [Fatal]
